FAERS Safety Report 6105385-6 (Version None)
Quarter: 2009Q1

REPORT INFORMATION
  Report Type: 
  Country: None (occurrence: None)
  Receive Date: 20090306
  Receipt Date: 20090224
  Transmission Date: 20090719
  Serious: Yes (Other)
  Sender: FDA-Public Use
  Company Number: US-PFIZER INC-2009175443

PATIENT
  Sex: Female
  Weight: 56.689 kg

DRUGS (1)
  1. FLAGYL [Suspect]
     Indication: CROHN'S DISEASE
     Dates: start: 19970101

REACTIONS (2)
  - MOTOR DYSFUNCTION [None]
  - PAIN [None]
